FAERS Safety Report 16802276 (Version 1)
Quarter: 2019Q3

REPORT INFORMATION
  Report Type: Spontaneous
  Country: CA (occurrence: CA)
  Receive Date: 20190912
  Receipt Date: 20190912
  Transmission Date: 20191005
  Serious: Yes (Death)
  Sender: FDA-Public Use
  Company Number: PHHY2019CA211083

PATIENT
  Age: 67 Year
  Sex: Male

DRUGS (4)
  1. INFLIXIMAB [Suspect]
     Active Substance: INFLIXIMAB
     Indication: MYOCARDITIS
     Dosage: 5 MG/KG, UNK
     Route: 065
  2. METHYLPREDNISOLONE. [Suspect]
     Active Substance: METHYLPREDNISOLONE
     Indication: MYOCARDITIS
     Dosage: 200 MG, UNK (FOR 1 DAY)
     Route: 065
  3. METHYLPREDNISOLONE. [Suspect]
     Active Substance: METHYLPREDNISOLONE
     Indication: RHABDOMYOLYSIS
     Dosage: 1000 MG, UNK (FOR 3 DAYS)
     Route: 065
  4. INFLIXIMAB [Suspect]
     Active Substance: INFLIXIMAB
     Indication: RHABDOMYOLYSIS

REACTIONS (14)
  - Myocarditis [Fatal]
  - Acute kidney injury [Fatal]
  - Cardiac failure [Fatal]
  - Liver disorder [Fatal]
  - Hypotension [Fatal]
  - Multiple organ dysfunction syndrome [Fatal]
  - Respiratory failure [Fatal]
  - Drug ineffective for unapproved indication [Fatal]
  - Rhabdomyolysis [Fatal]
  - Condition aggravated [Fatal]
  - Respiratory distress [Fatal]
  - Pyrexia [Fatal]
  - Pulmonary oedema [Fatal]
  - Pleural effusion [Fatal]
